FAERS Safety Report 10549928 (Version 2)
Quarter: 2014Q4

REPORT INFORMATION
  Report Type: Spontaneous
  Country: JP (occurrence: JP)
  Receive Date: 20141028
  Receipt Date: 20141116
  Transmission Date: 20150529
  Serious: Yes (Hospitalization, Other)
  Sender: FDA-Public Use
  Company Number: US-ASTRAZENECA-2014SE80966

PATIENT
  Age: 1 Year
  Sex: Male
  Weight: 9.8 kg

DRUGS (15)
  1. SYNAGIS [Suspect]
     Active Substance: PALIVIZUMAB
     Indication: IMMUNODEFICIENCY
     Route: 030
     Dates: start: 20141006, end: 20141006
  2. SYNAGIS [Suspect]
     Active Substance: PALIVIZUMAB
     Indication: ANTIVIRAL PROPHYLAXIS
     Route: 030
  3. AMBROXOL HYDROCHLORIDE [Concomitant]
     Active Substance: AMBROXOL HYDROCHLORIDE
     Indication: PNEUMONIA
     Route: 048
     Dates: start: 20140611
  4. LACTIC ACID. [Concomitant]
     Active Substance: LACTIC ACID
     Indication: ANTIBIOTIC PROPHYLAXIS
     Route: 048
     Dates: start: 20140822
  5. FLUCONAZOLE. [Concomitant]
     Active Substance: FLUCONAZOLE
     Indication: PROPHYLAXIS
     Route: 048
     Dates: start: 20140822
  6. FLUCONAZOLE. [Concomitant]
     Active Substance: FLUCONAZOLE
     Indication: FUNGAL INFECTION
     Route: 048
     Dates: start: 20140822
  7. CLARITHROMYCIN. [Concomitant]
     Active Substance: CLARITHROMYCIN
     Indication: PNEUMONIA
     Route: 048
     Dates: start: 20140828
  8. SYNAGIS [Suspect]
     Active Substance: PALIVIZUMAB
     Indication: BRAIN NEOPLASM MALIGNANT
     Route: 030
     Dates: start: 20141006, end: 20141006
  9. MONTELUKAST SODIUM. [Concomitant]
     Active Substance: MONTELUKAST SODIUM
     Indication: ASTHMA
     Route: 048
     Dates: start: 20140619
  10. SYNAGIS [Suspect]
     Active Substance: PALIVIZUMAB
     Indication: ANTIVIRAL PROPHYLAXIS
     Route: 030
     Dates: start: 20141006, end: 20141006
  11. FAMOTIDINE. [Concomitant]
     Active Substance: FAMOTIDINE
     Indication: GASTRITIS
     Route: 048
     Dates: start: 20140624, end: 20141010
  12. SULFAMETHOXAZOLE AND TRIMETHOPRIM [Concomitant]
     Active Substance: SULFAMETHOXAZOLE\TRIMETHOPRIM
     Indication: ANTIFUNGAL PROPHYLAXIS
     Dosage: TUESDAY, WEDNESDAY, AND THURSDAY
     Dates: start: 20140819
  13. SYNAGIS [Suspect]
     Active Substance: PALIVIZUMAB
     Indication: IMMUNODEFICIENCY
     Route: 030
  14. SYNAGIS [Suspect]
     Active Substance: PALIVIZUMAB
     Indication: BRAIN NEOPLASM MALIGNANT
     Route: 030
  15. CARBOCISTEINE [Concomitant]
     Active Substance: CARBOCYSTEINE
     Indication: PNEUMONIA
     Route: 048
     Dates: start: 20140611

REACTIONS (3)
  - Neutropenia [Recovered/Resolved]
  - C-reactive protein increased [Recovering/Resolving]
  - Serum amyloid A protein increased [Recovering/Resolving]

NARRATIVE: CASE EVENT DATE: 20141009
